FAERS Safety Report 23630833 (Version 1)
Quarter: 2024Q1

REPORT INFORMATION
  Report Type: Spontaneous
  Country: DE (occurrence: DE)
  Receive Date: 20240314
  Receipt Date: 20240314
  Transmission Date: 20240410
  Serious: Yes (Other)
  Sender: FDA-Public Use
  Company Number: DE-002147023-NVSC2024DE049845

PATIENT
  Age: 80 Year
  Sex: Male

DRUGS (1)
  1. RANIBIZUMAB [Suspect]
     Active Substance: RANIBIZUMAB
     Indication: Neovascular age-related macular degeneration
     Dosage: UNK, Q4W (INTRAVITREAL INJECTIONS RIGHT EYE)
     Route: 050

REACTIONS (2)
  - Neovascular age-related macular degeneration [Unknown]
  - Retinal oedema [Unknown]
